FAERS Safety Report 8416696-3 (Version None)
Quarter: 2012Q2

REPORT INFORMATION
  Report Type: 
  Country: None (occurrence: None)
  Receive Date: 20120323
  Receipt Date: 20110316
  Transmission Date: 20120825
  Serious: Yes (Other)
  Sender: FDA-Public Use
  Company Number: 163-21880-11023090

PATIENT
  Age: 80 Year
  Sex: Male
  Weight: 90.6 kg

DRUGS (3)
  1. REVLIMID [Suspect]
     Indication: MULTIPLE MYELOMA
     Dosage: 25 MG, 1 IN 1 D, PO ; 5MG-10MG-20MG, DAILY, PO ; 10 MG, DAILY FOR 21 DAYS, PO
     Route: 048
     Dates: start: 20100801, end: 20110101
  2. REVLIMID [Suspect]
     Indication: MULTIPLE MYELOMA
     Dosage: 25 MG, 1 IN 1 D, PO ; 5MG-10MG-20MG, DAILY, PO ; 10 MG, DAILY FOR 21 DAYS, PO
     Route: 048
     Dates: start: 20090101
  3. REVLIMID [Suspect]
     Indication: MULTIPLE MYELOMA
     Dosage: 25 MG, 1 IN 1 D, PO ; 5MG-10MG-20MG, DAILY, PO ; 10 MG, DAILY FOR 21 DAYS, PO
     Route: 048
     Dates: start: 20081126

REACTIONS (1)
  - MALAISE [None]
